FAERS Safety Report 9795807 (Version 4)
Quarter: 2014Q1

REPORT INFORMATION
  Report Type: Spontaneous
  Country: AR (occurrence: AR)
  Receive Date: 20140103
  Receipt Date: 20140305
  Transmission Date: 20141002
  Serious: Yes (Life-Threatening, Hospitalization, Disabling)
  Sender: FDA-Public Use
  Company Number: AR-SA-2013SA136102

PATIENT
  Age: 40 Year
  Sex: Female

DRUGS (7)
  1. AUBAGIO [Suspect]
     Indication: MULTIPLE SCLEROSIS
     Route: 048
     Dates: start: 20130801, end: 20131115
  2. PREGABALIN [Concomitant]
     Route: 048
  3. CLONAZEPAM [Concomitant]
     Route: 048
  4. BACLOFEN [Concomitant]
     Route: 048
  5. SOLIFENACIN SUCCINATE [Concomitant]
     Route: 048
  6. DIOSMIN [Concomitant]
     Route: 048
  7. OMEPRAZOLE [Concomitant]
     Route: 048

REACTIONS (6)
  - Status epilepticus [Not Recovered/Not Resolved]
  - Coma [Not Recovered/Not Resolved]
  - Multiple sclerosis relapse [Not Recovered/Not Resolved]
  - Quadriparesis [Not Recovered/Not Resolved]
  - Visual acuity reduced [Not Recovered/Not Resolved]
  - Sensory disturbance [Not Recovered/Not Resolved]
